FAERS Safety Report 6786010-8 (Version None)
Quarter: 2010Q2

REPORT INFORMATION
  Report Type: 
  Country: None (occurrence: None)
  Receive Date: 20100622
  Receipt Date: 20100622
  Transmission Date: 20101027
  Serious: No
  Sender: FDA-Public Use
  Company Number: None

PATIENT
  Age: 57 Year
  Sex: Female
  Weight: 68.0396 kg

DRUGS (1)
  1. MULTIVITAMIN [Suspect]
     Dosage: ONE PER DAY PO
     Route: 048

REACTIONS (3)
  - ABDOMINAL PAIN UPPER [None]
  - IMPAIRED WORK ABILITY [None]
  - NAUSEA [None]
